FAERS Safety Report 8359656-3 (Version None)
Quarter: 2012Q1

REPORT INFORMATION
  Report Type: 
  Country: None (occurrence: None)
  Receive Date: 20120315
  Receipt Date: 20110524
  Transmission Date: 20120608
  Serious: Yes (Other)
  Sender: FDA-Public Use
  Company Number: PHHY2011US43483

PATIENT
  Age: 57 Year
  Sex: Female

DRUGS (4)
  1. SYNTHROID [Concomitant]
  2. ARICEPT [Concomitant]
  3. GILENYA [Suspect]
     Indication: MULTIPLE SCLEROSIS
     Dosage: 0.5 MG, DAILY, ORAL
     Route: 048
     Dates: start: 20110302
  4. SIMVASTATIN [Concomitant]

REACTIONS (2)
  - HEART RATE DECREASED [None]
  - DIZZINESS [None]
